FAERS Safety Report 5743854-9 (Version None)
Quarter: 2008Q2

REPORT INFORMATION
  Report Type: 
  Country: None (occurrence: None)
  Receive Date: 20080519
  Receipt Date: 20080519
  Transmission Date: 20081010
  Serious: Yes (Other)
  Sender: FDA-Public Use
  Company Number: None

PATIENT
  Age: 71 Year
  Sex: Female
  Weight: 162.8413 kg

DRUGS (1)
  1. TIGECYCLINE 50 MG WYETH [Suspect]
     Indication: COLITIS
     Dosage: 50 MG Q 12HR IV
     Route: 042
     Dates: start: 20080501, end: 20080508

REACTIONS (1)
  - PANCREATITIS [None]
